FAERS Safety Report 17354974 (Version 2)
Quarter: 2020Q4

REPORT INFORMATION
  Report Type: Report from Study
  Country: US (occurrence: US)
  Receive Date: 20200131
  Receipt Date: 20201119
  Transmission Date: 20210113
  Serious: Yes (Disabling, Other)
  Sender: FDA-Public Use
  Company Number: US-SA-2017SA203685

PATIENT

DRUGS (3)
  1. GABAPENTIN. [Concomitant]
     Active Substance: GABAPENTIN
     Indication: NEURALGIA
     Dosage: UNK
     Route: 065
  2. ALEMTUZUMAB [Suspect]
     Active Substance: ALEMTUZUMAB
     Dosage: 12 MG,QD
     Route: 041
     Dates: start: 20181031, end: 20181102
  3. ALEMTUZUMAB [Suspect]
     Active Substance: ALEMTUZUMAB
     Indication: MULTIPLE SCLEROSIS
     Dosage: 12 MG,QD
     Route: 041
     Dates: start: 20171002, end: 20171006

REACTIONS (12)
  - Deafness [Unknown]
  - Muscle disorder [Unknown]
  - Gait disturbance [Unknown]
  - Tinnitus [Unknown]
  - Muscle rigidity [Unknown]
  - Anxiety [Unknown]
  - Fatigue [Unknown]
  - Crying [Unknown]
  - Uhthoff^s phenomenon [Unknown]
  - Back pain [Recovered/Resolved]
  - Pharyngitis streptococcal [Unknown]
  - Musculoskeletal stiffness [Unknown]

NARRATIVE: CASE EVENT DATE: 20171005
